FAERS Safety Report 7438541-5 (Version None)
Quarter: 2011Q2

REPORT INFORMATION
  Report Type: 
  Country: None (occurrence: None)
  Receive Date: 20110426
  Receipt Date: 20110412
  Transmission Date: 20111010
  Serious: No
  Sender: FDA-Public Use
  Company Number: CTI_01308_2011

PATIENT
  Sex: Male

DRUGS (2)
  1. MEIACT MS (CEFDITOREN PIVOXIL) [Suspect]
     Dosage: DF
     Route: 048
     Dates: start: 20080601
  2. MEIACT MS (CEFDITOREN PIVOXIL) [Suspect]
     Indication: PRODUCT USED FOR UNKNOWN INDICATION
     Dosage: DF
     Route: 048
     Dates: start: 20100423, end: 20110106

REACTIONS (8)
  - HYPERAMMONAEMIA [None]
  - NASOPHARYNGITIS [None]
  - CARNITINE DEFICIENCY [None]
  - HYPOGLYCAEMIA [None]
  - ALTERED STATE OF CONSCIOUSNESS [None]
  - BLOOD CREATINE PHOSPHOKINASE INCREASED [None]
  - HYPOTONIA [None]
  - CONVULSION [None]
